FAERS Safety Report 10887106 (Version 1)
Quarter: 2015Q1

REPORT INFORMATION
  Report Type: Spontaneous
  Country: US (occurrence: US)
  Receive Date: 20150304
  Receipt Date: 20150304
  Transmission Date: 20150721
  Serious: Yes (Hospitalization, Congenital Anomaly, Other)
  Sender: FDA-Public Use
  Company Number: US-APOTEX-2015AP007103

PATIENT
  Age: 0 Day
  Sex: Male
  Weight: 2.72 kg

DRUGS (4)
  1. METHYLDOPA CF [Concomitant]
     Indication: PRODUCT USED FOR UNKNOWN INDICATION
     Route: 064
  2. PAXIL [Suspect]
     Active Substance: PAROXETINE HYDROCHLORIDE
     Indication: DEPRESSION
  3. PAXIL [Suspect]
     Active Substance: PAROXETINE HYDROCHLORIDE
     Indication: ANXIETY
     Dosage: 40 MG, UNK
     Route: 064
     Dates: start: 1998
  4. PROZAC [Concomitant]
     Active Substance: FLUOXETINE HYDROCHLORIDE
     Indication: PRODUCT USED FOR UNKNOWN INDICATION
     Route: 064

REACTIONS (5)
  - Polydactyly [Unknown]
  - Foetal exposure during pregnancy [Unknown]
  - Acrochordon [Unknown]
  - Hernia congenital [Unknown]
  - Plagiocephaly [Unknown]

NARRATIVE: CASE EVENT DATE: 19981224
